FAERS Safety Report 5505345-X (Version None)
Quarter: 2007Q4

REPORT INFORMATION
  Report Type: 
  Country: None (occurrence: None)
  Receive Date: 20071102
  Receipt Date: 20071024
  Transmission Date: 20080405
  Serious: Yes (Hospitalization)
  Sender: FDA-Public Use
  Company Number: US-ROCHE-470037

PATIENT
  Age: 54 Year
  Sex: Male
  Weight: 92.5 kg

DRUGS (34)
  1. PEG-INTERFERON ALFA 2A (RO 25-8310) [Suspect]
     Indication: HEPATITIS C
     Route: 058
     Dates: start: 20060303
  2. PEG-INTERFERON ALFA 2A (RO 25-8310) [Suspect]
     Route: 058
     Dates: end: 20060427
  3. PEG-INTERFERON ALFA 2A (RO 25-8310) [Suspect]
     Route: 058
     Dates: start: 20060505, end: 20060531
  4. RIBAVIRIN [Suspect]
     Indication: HEPATITIS C
     Dosage: DOSE WAS INCREASED TO 1200 MG DAILY ON AN UNSPECIFIED DATE.
     Route: 048
     Dates: start: 20060303
  5. RIBAVIRIN [Suspect]
     Route: 048
     Dates: end: 20060427
  6. RIBAVIRIN [Suspect]
     Route: 048
     Dates: start: 20060429, end: 20060621
  7. CELLCEPT [Suspect]
     Indication: IMMUNOSUPPRESSION
     Route: 065
     Dates: start: 20060717
  8. PROGRAF [Suspect]
     Indication: IMMUNOSUPPRESSION
     Route: 065
     Dates: start: 20060706
  9. PREDNISONE [Suspect]
     Indication: IMMUNOSUPPRESSION
     Dosage: ON 03 JUNE 2006 DOSE WAS INCREASED TO 40 MG/DAILY.
     Route: 065
     Dates: start: 20051210, end: 20061103
  10. PREDNISONE [Suspect]
     Route: 065
     Dates: start: 20061104, end: 20061105
  11. PREDNISONE [Suspect]
     Route: 065
     Dates: start: 20061106, end: 20061107
  12. PREDNISONE [Suspect]
     Route: 065
     Dates: start: 20061108, end: 20061110
  13. PREDNISONE [Suspect]
     Route: 065
     Dates: start: 20061111, end: 20061112
  14. PREDNISONE [Suspect]
     Route: 065
     Dates: start: 20061112, end: 20061125
  15. PREDNISONE [Suspect]
     Route: 065
     Dates: start: 20061126, end: 20070108
  16. PREDNISONE [Suspect]
     Route: 065
     Dates: start: 20070109
  17. LABETALOL HCL [Concomitant]
     Indication: HYPERTENSION
     Dates: start: 20051118, end: 20060428
  18. CALCIUM [Concomitant]
     Dates: start: 20051118
  19. TRAMADOL HCL [Concomitant]
     Dates: start: 20051128
  20. MAGNESIUM SULFATE [Concomitant]
     Dates: start: 20051205
  21. LACTULOSE [Concomitant]
     Dates: start: 20051207
  22. ACIPHEX [Concomitant]
     Dates: start: 20051229
  23. CYCLOSPORINE [Concomitant]
     Dosage: ON 13 MAY 2006 DOSE WAS REDUCED TO 175 MG.
     Dates: start: 20060405, end: 20060706
  24. PAXIL [Concomitant]
     Indication: AGITATION
     Dates: start: 20060413
  25. TRAZODONE HCL [Concomitant]
     Dates: start: 20051201
  26. ACTIGALL [Concomitant]
     Dates: start: 20060628
  27. CARDIZEM [Concomitant]
     Dates: start: 20060429
  28. LOPRESSOR [Concomitant]
     Dates: start: 20060429
  29. HUMALOG [Concomitant]
     Dosage: DOSE REPORTED AS SLIDING SCALE
     Dates: start: 20060710
  30. ASPIRIN [Concomitant]
     Dates: start: 20060718
  31. VALCYTE [Concomitant]
     Dates: start: 20060817
  32. NYSTATIN [Concomitant]
     Dosage: STOPPED 01 MAY 2006 AND RESTARTED 17 AUGUST 2006 AT DOSE OF 20ML.
     Dates: start: 20060130
  33. LANTUS [Concomitant]
     Dates: start: 20060707
  34. COMPAZINE [Concomitant]
     Dates: start: 20060108

REACTIONS (1)
  - HEPATIC ARTERY THROMBOSIS [None]
